FAERS Safety Report 16597408 (Version 6)
Quarter: 2019Q4

REPORT INFORMATION
  Report Type: Spontaneous
  Country: US (occurrence: US)
  Receive Date: 20190719
  Receipt Date: 20191121
  Transmission Date: 20200122
  Serious: Yes (Hospitalization)
  Sender: FDA-Public Use
  Company Number: US-PFIZER INC-2019305533

PATIENT
  Age: 56 Year
  Sex: Female
  Weight: 77 kg

DRUGS (2)
  1. MEDROL [Suspect]
     Active Substance: METHYLPREDNISOLONE
     Indication: SINUSITIS
     Dosage: 4 MG, AT DIFFERENT DAYS AND DIFFERENT TIMES
     Route: 048
     Dates: start: 20190522, end: 20190530
  2. MEDROL [Suspect]
     Active Substance: METHYLPREDNISOLONE
     Indication: RHINITIS ALLERGIC
     Dosage: 6 MG, UNK
     Dates: start: 20190524, end: 20190531

REACTIONS (6)
  - Dysgeusia [Recovered/Resolved]
  - Ageusia [Not Recovered/Not Resolved]
  - Off label use [Unknown]
  - Product use in unapproved indication [Unknown]
  - Anosmia [Not Recovered/Not Resolved]
  - Drug hypersensitivity [Unknown]

NARRATIVE: CASE EVENT DATE: 201905
